FAERS Safety Report 25853157 (Version 1)
Quarter: 2025Q3

REPORT INFORMATION
  Report Type: Report from Study
  Country: US (occurrence: US)
  Receive Date: 20250926
  Receipt Date: 20250926
  Transmission Date: 20251021
  Serious: Yes (Death, Other)
  Sender: RECORDATI
  Company Number: US-ORPHANEU-2025006673

PATIENT
  Age: 83 Year
  Sex: Male

DRUGS (1)
  1. ISTURISA [Suspect]
     Active Substance: OSILODROSTAT PHOSPHATE
     Indication: Product used for unknown indication
     Dosage: 2 MG, BID
     Route: 048
     Dates: start: 20250710

REACTIONS (2)
  - Cardiac disorder [Fatal]
  - Fall [Unknown]

NARRATIVE: CASE EVENT DATE: 20250827
